FAERS Safety Report 23215712 (Version 1)
Quarter: 2023Q4

REPORT INFORMATION
  Report Type: Spontaneous
  Country: HR (occurrence: HR)
  Receive Date: 20231122
  Receipt Date: 20231122
  Transmission Date: 20240110
  Serious: Yes (Death, Hospitalization, Other)
  Sender: FDA-Public Use
  Company Number: HR-ASTPRD-AER-2023-031601

PATIENT
  Age: 82 Year
  Sex: Male

DRUGS (1)
  1. XTANDI [Suspect]
     Active Substance: ENZALUTAMIDE
     Indication: Product used for unknown indication
     Route: 048
     Dates: start: 202210

REACTIONS (7)
  - Death [Fatal]
  - General physical health deterioration [Unknown]
  - Urosepsis [Unknown]
  - Multiple organ dysfunction syndrome [Unknown]
  - Fatigue [Unknown]
  - Hypotension [Unknown]
  - Cardiomegaly [Unknown]

NARRATIVE: CASE EVENT DATE: 20230601
